FAERS Safety Report 9928303 (Version 1)
Quarter: 2014Q1

REPORT INFORMATION
  Report Type: Spontaneous
  Country: US (occurrence: US)
  Receive Date: 20140227
  Receipt Date: 20140227
  Transmission Date: 20141002
  Serious: Yes (Hospitalization, Other)
  Sender: FDA-Public Use
  Company Number: PHHY2014US018392

PATIENT
  Sex: Male
  Weight: 2.2 kg

DRUGS (5)
  1. DIGOXIN [Suspect]
     Route: 064
  2. SOTALOL [Suspect]
     Route: 064
  3. PROPRANOLOL [Suspect]
     Indication: TACHYCARDIA FOETAL
     Route: 048
  4. FLECAINIDE [Suspect]
     Route: 064
  5. AMIODARONE [Concomitant]

REACTIONS (12)
  - Necrotising colitis [Recovered/Resolved]
  - Pneumatosis [Unknown]
  - Vomiting [Unknown]
  - Abdominal distension [Unknown]
  - Mucosal necrosis [Unknown]
  - Mucosal haemorrhage [Unknown]
  - Intestinal congestion [Unknown]
  - Tachycardia foetal [Recovered/Resolved]
  - Premature baby [Unknown]
  - Low birth weight baby [Unknown]
  - Drug ineffective [Unknown]
  - Foetal exposure during pregnancy [Unknown]
